FAERS Safety Report 6692130-9 (Version None)
Quarter: 2010Q2

REPORT INFORMATION
  Report Type: 
  Country: None (occurrence: None)
  Receive Date: 20100422
  Receipt Date: 20090623
  Transmission Date: 20101027
  Serious: No
  Sender: FDA-Public Use
  Company Number: US-ASTRAZENECA-2009UW12671

PATIENT
  Age: 71 Year
  Sex: Female

DRUGS (3)
  1. METOPROLOL SUCCINATE [Suspect]
     Indication: HYPERTENSION
     Route: 048
     Dates: start: 20070101
  2. NIFEDIPINE [Concomitant]
  3. LISINOPRIL [Concomitant]

REACTIONS (20)
  - ABDOMINAL DISTENSION [None]
  - AMNESIA [None]
  - APPETITE DISORDER [None]
  - BLOOD GLUCOSE INCREASED [None]
  - BLOOD PRESSURE DECREASED [None]
  - DIZZINESS [None]
  - DRY MOUTH [None]
  - DYSPEPSIA [None]
  - FATIGUE [None]
  - GALLBLADDER DISORDER [None]
  - GOITRE [None]
  - HIGH DENSITY LIPOPROTEIN DECREASED [None]
  - HYPOAESTHESIA [None]
  - LIVER DISORDER [None]
  - MALABSORPTION [None]
  - NIGHTMARE [None]
  - OEDEMA [None]
  - PRURITUS [None]
  - THYROID NEOPLASM [None]
  - TREMOR [None]
